FAERS Safety Report 8573456 (Version 6)
Quarter: 2013Q2

REPORT INFORMATION
  Report Type: Spontaneous
  Country: US (occurrence: US)
  Receive Date: 20120522
  Receipt Date: 20130520
  Transmission Date: 20140414
  Serious: Yes (Hospitalization, Other)
  Sender: FDA-Public Use
  Company Number: US-VIROPHARMA INCORPORATED-20120509CINRY2954

PATIENT
  Age: 39 Year
  Sex: Male
  Weight: 104.87 kg

DRUGS (7)
  1. CINRYZE (C1 ESTERASE INHIBITOR (HUMAN)) [Suspect]
     Indication: HEREDITARY ANGIOEDEMA
     Dates: start: 201110, end: 201201
  2. CINRYZE (C1 ESTERASE INHIBITOR (HUMAN)) [Suspect]
     Dates: start: 201201
  3. CINRYZE (C1 ESTERASE INHIBITOR (HUMAN)) [Suspect]
  4. BERINERT [Suspect]
     Indication: HEREDITARY ANGIOEDEMA
     Dosage: UNKNOWN
     Route: 065
  5. UNSPECIFED INSULIN [Concomitant]
     Indication: TYPE 1 DIABETES MELLITUS
     Dosage: DOSAGE DEPENDENT ON BLOOD SUGAR LEVELS
     Route: 058
  6. LOVENOX [Concomitant]
     Indication: ANTICOAGULANT THERAPY
     Route: 065
     Dates: start: 2012
  7. COUMADIN [Concomitant]
     Indication: ANTICOAGULANT THERAPY
     Route: 065
     Dates: start: 2012

REACTIONS (12)
  - Staphylococcal infection [Recovered/Resolved]
  - Catheter site infection [Recovered/Resolved]
  - Device related infection [Recovered/Resolved]
  - Jugular vein thrombosis [Recovered/Resolved]
  - Hereditary angioedema [Recovered/Resolved]
  - Thrombosis [Unknown]
  - Device related infection [Recovered/Resolved]
  - Thrombosis in device [Recovered/Resolved]
  - Inappropriate schedule of drug administration [Recovered/Resolved]
  - Headache [Unknown]
  - Treatment noncompliance [Not Recovered/Not Resolved]
  - Poor venous access [Not Recovered/Not Resolved]
